FAERS Safety Report 7554935-1 (Version None)
Quarter: 2011Q2

REPORT INFORMATION
  Report Type: 
  Country: None (occurrence: None)
  Receive Date: 20110617
  Receipt Date: 20110608
  Transmission Date: 20111010
  Serious: Yes (Hospitalization, Other)
  Sender: FDA-Public Use
  Company Number: JP-PFIZER INC-2011125219

PATIENT
  Age: 70 Year
  Sex: Male

DRUGS (3)
  1. ADALAT CC [Concomitant]
     Indication: HYPERTENSION
     Dosage: UNK
     Dates: start: 20101227, end: 20110216
  2. VALSARTAN [Concomitant]
     Indication: HYPERTENSION
     Dosage: UNK
     Route: 048
     Dates: start: 20101227, end: 20110216
  3. ATORVASTATIN CALCIUM [Suspect]
     Indication: HYPERCHOLESTEROLAEMIA
     Dosage: 10 MG, DAILY
     Route: 048
     Dates: start: 20110131, end: 20110216

REACTIONS (1)
  - MYOCARDIAL INFARCTION [None]
